FAERS Safety Report 9520783 (Version 1)
Quarter: 2013Q1

REPORT INFORMATION
  Report Type: Spontaneous
  Country: US (occurrence: None)
  Receive Date: 20130305
  Receipt Date: 20130305
  Transmission Date: 20140127
  Serious: Yes (Hospitalization, Other)
  Sender: FDA-Public Use
  Company Number: 163-21880-2080090

PATIENT
  Age: 68 Year
  Sex: Male

DRUGS (7)
  1. REVLIMID [Suspect]
     Indication: PLASMA CELL MYELOMA
     Dosage: 25 MG, 21 IN 28 D, PO
     Route: 048
     Dates: start: 20120423
  2. OXYCODONE (OXYCODONE) (UNKNOWN) (OXYCODONE) [Concomitant]
  3. LISINOPRIL (LISINOPRIL) (UNKNOWN) [Concomitant]
  4. ATENOLOL (ATENOLOL) (UNKNOWN) [Concomitant]
  5. ASA (ACETYLSALICYLIC ACID) (UNKNOWN) [Concomitant]
  6. DECADRON [Concomitant]
  7. HALFPRIN (ACETYLSALICYLIC ACID) (UNKNOWN) [Concomitant]

REACTIONS (4)
  - Deep vein thrombosis [None]
  - Ageusia [None]
  - Fatigue [None]
  - Malaise [None]
